FAERS Safety Report 8588302-9 (Version None)
Quarter: 2012Q3

REPORT INFORMATION
  Report Type: 
  Country: None (occurrence: None)
  Receive Date: 20120813
  Receipt Date: 20120730
  Transmission Date: 20120928
  Serious: Yes (Hospitalization)
  Sender: FDA-Public Use
  Company Number: GB-ELI_LILLY_AND_COMPANY-GB201201001693

PATIENT
  Age: 43 Year
  Sex: Male
  Weight: 90 kg

DRUGS (5)
  1. OLANZAPINE [Suspect]
     Indication: SCHIZOPHRENIA, PARANOID TYPE
     Dosage: 10 MG, QD
     Route: 048
     Dates: start: 20091201, end: 20110604
  2. SERTRALINE HYDROCHLORIDE [Concomitant]
     Indication: DEPRESSION
     Dosage: 50 MG, QD
     Route: 048
  3. CO-BENELDOPA [Concomitant]
     Indication: PARKINSONISM
     Dosage: 1 DF, TID
     Route: 048
  4. QUININE SULFATE [Concomitant]
     Indication: MUSCLE SPASMS
     Dosage: 200 MG, QD
     Route: 048
  5. BROMOCRIPTINE MESYLATE [Concomitant]
     Indication: PARKINSONISM
     Dosage: 2.5 MG, TID
     Route: 048

REACTIONS (4)
  - NEUROLEPTIC MALIGNANT SYNDROME [None]
  - BLOOD MAGNESIUM DECREASED [None]
  - BLOOD ZINC DECREASED [None]
  - HAEMATOCRIT DECREASED [None]
